FAERS Safety Report 6819890-8 (Version None)
Quarter: 2010Q3

REPORT INFORMATION
  Report Type: 
  Country: None (occurrence: None)
  Receive Date: 20100707
  Receipt Date: 20100629
  Transmission Date: 20110219
  Serious: Yes (Other)
  Sender: FDA-Public Use
  Company Number: BR-ROCHE-705937

PATIENT
  Sex: Female
  Weight: 67 kg

DRUGS (2)
  1. ROACUTAN [Suspect]
     Indication: ACNE
     Route: 048
     Dates: start: 20070501, end: 20080401
  2. ROACUTAN [Suspect]
     Route: 048
     Dates: start: 20080501, end: 20081201

REACTIONS (8)
  - ABDOMINAL PAIN [None]
  - ACNE [None]
  - ANGER [None]
  - EPISTAXIS [None]
  - HEADACHE [None]
  - LIP DRY [None]
  - PHARYNGEAL CYST [None]
  - SEBORRHOEA [None]
